FAERS Safety Report 17823220 (Version 1)
Quarter: 2020Q2

REPORT INFORMATION
  Report Type: Spontaneous
  Country: US (occurrence: US)
  Receive Date: 20200522
  Receipt Date: 20200522
  Transmission Date: 20200714
  Serious: No
  Sender: FDA-Public Use
  Company Number: None

PATIENT
  Age: 60 Year
  Sex: Male
  Weight: 103 kg

DRUGS (36)
  1. INSULIN REGULAR [Concomitant]
     Active Substance: INSULIN NOS
  2. ROCURONIUM [Concomitant]
     Active Substance: ROCURONIUM BROMIDE
  3. NOREPINEPHRINE. [Concomitant]
     Active Substance: NOREPINEPHRINE
  4. FUROSEMIDE. [Concomitant]
     Active Substance: FUROSEMIDE
  5. METHYLPREDNISOLONE. [Concomitant]
     Active Substance: METHYLPREDNISOLONE
  6. METOLAZONE. [Concomitant]
     Active Substance: METOLAZONE
  7. QUETIAPINE. [Concomitant]
     Active Substance: QUETIAPINE
  8. INSULIN GLARGINE [Concomitant]
     Active Substance: INSULIN GLARGINE
  9. MAGNESIUM SULFATE. [Concomitant]
     Active Substance: MAGNESIUM SULFATE
  10. MIDODRINE [Concomitant]
     Active Substance: MIDODRINE
  11. DEXMEDETOMIDINE. [Concomitant]
     Active Substance: DEXMEDETOMIDINE
  12. VASOPRESSIN. [Concomitant]
     Active Substance: VASOPRESSIN
  13. BUMETANIDE. [Concomitant]
     Active Substance: BUMETANIDE
  14. ENOXAPARIN [Concomitant]
     Active Substance: ENOXAPARIN
  15. GABAPENTIN. [Concomitant]
     Active Substance: GABAPENTIN
  16. POTASSIUM CHLORIDE. [Concomitant]
     Active Substance: POTASSIUM CHLORIDE
  17. OXYCODONE [Concomitant]
     Active Substance: OXYCODONE
  18. KETAMINE [Concomitant]
     Active Substance: KETAMINE
  19. PROPOFOL. [Concomitant]
     Active Substance: PROPOFOL
  20. REMDESIVIR (EUA) 100 MG VIAL [Suspect]
     Active Substance: REMDESIVIR
     Indication: COVID-19
     Route: 042
     Dates: start: 20200508, end: 20200508
  21. REMDESIVIR (EUA) 100 MG VIAL [Suspect]
     Active Substance: REMDESIVIR
     Indication: COVID-19
     Route: 042
     Dates: start: 20200509, end: 20200512
  22. LACTULOSE. [Concomitant]
     Active Substance: LACTULOSE
  23. MIDAZOLAM. [Concomitant]
     Active Substance: MIDAZOLAM
  24. ACETAMINOPHEN. [Concomitant]
     Active Substance: ACETAMINOPHEN
  25. FENTANYL. [Concomitant]
     Active Substance: FENTANYL
  26. ALBUTEROL. [Concomitant]
     Active Substance: ALBUTEROL
  27. CHLOROTHIAZIDE. [Concomitant]
     Active Substance: CHLOROTHIAZIDE
  28. VANCOMYCIN [Concomitant]
     Active Substance: VANCOMYCIN
  29. EPOPROSTENOL. [Concomitant]
     Active Substance: EPOPROSTENOL
  30. HYDROMORPHONE [Concomitant]
     Active Substance: HYDROMORPHONE
  31. ALBUMIN [Concomitant]
     Active Substance: ALBUMIN HUMAN
  32. CAFFEINE CITRATE. [Concomitant]
     Active Substance: CAFFEINE CITRATE
  33. FAMOTIDINE. [Concomitant]
     Active Substance: FAMOTIDINE
  34. INSULIN LISPRO [Concomitant]
     Active Substance: INSULIN LISPRO
  35. PIPERACILLIN/TAZOBACTAM [Concomitant]
     Active Substance: PIPERACILLIN SODIUM\TAZOBACTAM SODIUM
  36. HEPARIN [Concomitant]
     Active Substance: HEPARIN SODIUM

REACTIONS (2)
  - Acute kidney injury [None]
  - Acidosis [None]

NARRATIVE: CASE EVENT DATE: 20200514
